FAERS Safety Report 17918261 (Version 1)
Quarter: 2020Q2

REPORT INFORMATION
  Report Type: Spontaneous
  Country: FR (occurrence: FR)
  Receive Date: 20200619
  Receipt Date: 20200619
  Transmission Date: 20200714
  Serious: Yes (Hospitalization)
  Sender: FDA-Public Use
  Company Number: FR-ELI_LILLY_AND_COMPANY-FR202006007014

PATIENT
  Age: 69 Year
  Sex: Female
  Weight: 8 kg

DRUGS (1)
  1. ZYPREXA [Suspect]
     Active Substance: OLANZAPINE
     Indication: SCHIZOPHRENIA
     Dosage: 7.5 MG, DAILY
     Route: 048
     Dates: start: 20191113, end: 20191122

REACTIONS (1)
  - Catatonia [Recovered/Resolved]

NARRATIVE: CASE EVENT DATE: 20191118
